FAERS Safety Report 12882400 (Version 1)
Quarter: 2016Q4

REPORT INFORMATION
  Report Type: Spontaneous
  Country: US (occurrence: US)
  Receive Date: 20161025
  Receipt Date: 20161025
  Transmission Date: 20170207
  Serious: Yes (Hospitalization)
  Sender: FDA-Public Use
  Company Number: US-UCBSA-2016040345

PATIENT
  Age: 54 Year
  Sex: Male

DRUGS (1)
  1. CIMZIA [Suspect]
     Active Substance: CERTOLIZUMAB PEGOL
     Indication: PRODUCT USED FOR UNKNOWN INDICATION
     Dosage: 200 MG, EV 2 WEEKS(QOW),  NDC# 50474071081 6X200MG/ML
     Route: 058

REACTIONS (2)
  - Pneumonia [Unknown]
  - Infection [Unknown]

NARRATIVE: CASE EVENT DATE: 20160926
